FAERS Safety Report 7610556-3 (Version None)
Quarter: 2011Q3

REPORT INFORMATION
  Report Type: 
  Country: None (occurrence: None)
  Receive Date: 20110715
  Receipt Date: 20110701
  Transmission Date: 20111222
  Serious: Yes (Other)
  Sender: FDA-Public Use
  Company Number: US-BAYER-2011-043386

PATIENT
  Age: 63 Year

DRUGS (1)
  1. SORAFENIB (RAF KINASE INHIBITOR) [Suspect]
     Indication: HEPATIC NEOPLASM MALIGNANT
     Dosage: 200 MG, BID
     Route: 048
     Dates: start: 20110504

REACTIONS (5)
  - FLUID RETENTION [None]
  - TESTICULAR PAIN [None]
  - TESTICULAR SWELLING [None]
  - MALAISE [None]
  - NAUSEA [None]
